FAERS Safety Report 5218146-7 (Version None)
Quarter: 2007Q1

REPORT INFORMATION
  Report Type: 
  Country: None (occurrence: None)
  Receive Date: 20061130
  Receipt Date: 20060915
  Transmission Date: 20070707
  Serious: Yes (Hospitalization)
  Sender: FDA-Public Use
  Company Number: US200609003895

PATIENT
  Age: 58 Year
  Sex: Male
  Weight: 74.4 kg

DRUGS (3)
  1. ZYPREXA [Suspect]
     Dosage: UNK MG, UNK, UNK;  3.6 MH, UNK, UNK
     Dates: start: 20020809
  2. ZYPREXA [Suspect]
     Dosage: UNK MG, UNK, UNK;  3.6 MH, UNK, UNK
     Dates: start: 20020910
  3. BUPROPION HCL [Concomitant]

REACTIONS (3)
  - DIABETES MELLITUS [None]
  - METABOLIC DISORDER [None]
  - PANCREATITIS [None]
